FAERS Safety Report 4988041-7 (Version None)
Quarter: 2006Q2

REPORT INFORMATION
  Report Type: 
  Country: None (occurrence: None)
  Receive Date: 20060424
  Receipt Date: 20060412
  Transmission Date: 20061013
  Serious: Yes (Hospitalization, Other)
  Sender: FDA-Public Use
  Company Number: 2005133503

PATIENT
  Age: 63 Year
  Sex: Female
  Weight: 50.3493 kg

DRUGS (8)
  1. NICORETTE [Suspect]
     Indication: SMOKING CESSATION THERAPY
     Dosage: 1 CARTRIDGE DAILY, INHALATION
     Route: 055
     Dates: start: 20050812
  2. NICORETTE [Suspect]
  3. NICODERM [Suspect]
     Indication: SMOKING CESSATION THERAPY
     Dosage: ONE PATCH; INHALATION, TRANSDERMAL
     Route: 062
     Dates: start: 20050801
  4. RAMIPRIL [Concomitant]
  5. ATORVASTATIN CALCIUM [Concomitant]
  6. ASPIRIN [Concomitant]
  7. CLONAZEPAM [Concomitant]
  8. AMLODIPINE BESYLATE [Concomitant]

REACTIONS (6)
  - BACK PAIN [None]
  - DRUG DEPENDENCE [None]
  - INCORRECT DOSE ADMINISTERED [None]
  - INCORRECT ROUTE OF DRUG ADMINISTRATION [None]
  - INTENTIONAL DRUG MISUSE [None]
  - PERIPHERAL ARTERIAL OCCLUSIVE DISEASE [None]
